FAERS Safety Report 21530158 (Version 1)
Quarter: 2022Q4

REPORT INFORMATION
  Report Type: Spontaneous
  Country: US (occurrence: None)
  Receive Date: 20221028
  Receipt Date: 20221028
  Transmission Date: 20230113
  Serious: Yes (Hospitalization)
  Sender: FDA-Public Use
  Company Number: None

PATIENT

DRUGS (9)
  1. AMLODIPINE [Suspect]
     Active Substance: AMLODIPINE BESYLATE
  2. DONEPEZIL [Suspect]
     Active Substance: DONEPEZIL
  3. LORAZEPAM [Suspect]
     Active Substance: LORAZEPAM
  4. GABAPENTIN [Concomitant]
     Active Substance: GABAPENTIN
  5. MIRTAZAPINE [Concomitant]
     Active Substance: MIRTAZAPINE
  6. RAMELTEON [Concomitant]
     Active Substance: RAMELTEON
  7. RISPERIDONE [Concomitant]
     Active Substance: RISPERIDONE
  8. TAMSULOSIN [Concomitant]
     Active Substance: TAMSULOSIN
  9. TOPIRAMATE [Concomitant]
     Active Substance: TOPIRAMATE

REACTIONS (1)
  - Fall [None]

NARRATIVE: CASE EVENT DATE: 20210414
